FAERS Safety Report 6156302-4 (Version None)
Quarter: 2009Q2

REPORT INFORMATION
  Report Type: 
  Country: None (occurrence: None)
  Receive Date: 20090413
  Receipt Date: 20090331
  Transmission Date: 20091009
  Serious: Yes (Hospitalization)
  Sender: FDA-Public Use
  Company Number: 2009-194080-NL

PATIENT
  Age: 79 Year
  Sex: Female

DRUGS (5)
  1. MIRTAZAPINE [Suspect]
     Dosage: 30 MG DAILY
  2. PAROXETINE HCL [Suspect]
     Dosage: 10 MG DAILY
  3. AMLODIPINE [Concomitant]
  4. DONEPEZIL HCL [Concomitant]
  5. ACETAMINOPHEN [Concomitant]

REACTIONS (9)
  - AGITATION [None]
  - DELIRIUM [None]
  - GENERAL PHYSICAL HEALTH DETERIORATION [None]
  - IMMOBILE [None]
  - MENINGITIS [None]
  - REFUSAL OF TREATMENT BY RELATIVE [None]
  - RHABDOMYOLYSIS [None]
  - SEROTONIN SYNDROME [None]
  - URINARY INCONTINENCE [None]
